FAERS Safety Report 10180759 (Version 1)
Quarter: 2014Q2

REPORT INFORMATION
  Report Type: Spontaneous
  Country: US (occurrence: US)
  Receive Date: 20140519
  Receipt Date: 20140519
  Transmission Date: 20141212
  Serious: No
  Sender: FDA-Public Use
  Company Number: US-AMGEN INC.-USASP2014013505

PATIENT
  Age: 70 Year
  Sex: Female

DRUGS (3)
  1. PROLIA [Suspect]
     Indication: OSTEOPOROSIS POSTMENOPAUSAL
     Dosage: UNK
     Route: 065
     Dates: start: 20131205
  2. VITAMIN D                          /00107901/ [Concomitant]
     Dosage: 400 UNK, UNK
     Route: 065
  3. CALCIUM [Concomitant]
     Dosage: 1000 UNK, UNK
     Route: 065

REACTIONS (4)
  - Feeling abnormal [Unknown]
  - Back pain [Unknown]
  - Gastrooesophageal reflux disease [Unknown]
  - Constipation [Unknown]
